FAERS Safety Report 6601628-0 (Version None)
Quarter: 2010Q1

REPORT INFORMATION
  Report Type: 
  Country: None (occurrence: None)
  Receive Date: 20100217
  Receipt Date: 20100203
  Transmission Date: 20100710
  Serious: Yes (Other)
  Sender: FDA-Public Use
  Company Number: 2010SA007652

PATIENT
  Age: 76 Year
  Sex: Female

DRUGS (3)
  1. FLUDARA [Suspect]
     Indication: CHRONIC LYMPHOCYTIC LEUKAEMIA
     Dosage: ORAL; ORAL; ORAL
     Route: 048
     Dates: start: 20080401
  2. FLUDARA [Suspect]
     Indication: CHRONIC LYMPHOCYTIC LEUKAEMIA
     Dosage: ORAL; ORAL; ORAL
     Route: 048
     Dates: start: 20080501
  3. FLUDARA [Suspect]
     Indication: CHRONIC LYMPHOCYTIC LEUKAEMIA
     Dosage: ORAL; ORAL; ORAL
     Route: 048
     Dates: start: 20090301

REACTIONS (4)
  - BALANCE DISORDER [None]
  - DROP ATTACKS [None]
  - NERVOUS SYSTEM DISORDER [None]
  - VESTIBULAR DISORDER [None]
